FAERS Safety Report 4409728-0 (Version None)
Quarter: 2004Q3

REPORT INFORMATION
  Report Type: 
  Country: None (occurrence: None)
  Receive Date: 20040723
  Receipt Date: 20040709
  Transmission Date: 20050211
  Serious: Yes (Hospitalization)
  Sender: FDA-Public Use
  Company Number: CERZ-10611

PATIENT
  Age: 68 Year
  Sex: Male
  Weight: 81.8 kg

DRUGS (1)
  1. CEREZYME [Suspect]
     Indication: GAUCHER'S DISEASE
     Dosage: 5600 UNITS Q2WKS IV
     Route: 042
     Dates: start: 20010201

REACTIONS (2)
  - ARTHROPATHY [None]
  - MEDICATION ERROR [None]
